FAERS Safety Report 10102312 (Version 1)
Quarter: 2014Q2

REPORT INFORMATION
  Report Type: Spontaneous
  Country: US (occurrence: US)
  Receive Date: 20140424
  Receipt Date: 20140424
  Transmission Date: 20141212
  Serious: Yes (Death, Other)
  Sender: FDA-Public Use
  Company Number: US-JNJFOC-20140415356

PATIENT
  Sex: 0

DRUGS (62)
  1. LEUCOVORIN [Suspect]
     Indication: BURKITT^S LYMPHOMA
     Dosage: EVERY 6 HOURS UNTIL LEVEL {0.05 LMOL/L, 1 DAY, CYCLE LENGTH 21 DAYS
     Route: 042
  2. LEUCOVORIN [Suspect]
     Indication: BURKITT^S LYMPHOMA
     Dosage: 50 MG/M2 36 HOURS AFTER INITIATION OF METHOTREXATE, 2 DAYS, CYCLE LENGTH 21 DAYS
     Route: 042
  3. LEUCOVORIN [Suspect]
     Indication: BURKITT^S LYMPHOMA
     Dosage: 50 MG/M2 36 HOURS AFTER INITIATION OF METHOTREXATE, 2 DAYS, CYCLE LENGTH 21 DAYS
     Route: 042
  4. LEUCOVORIN [Suspect]
     Indication: BURKITT^S LYMPHOMA
     Dosage: EVERY 6 HOURS UNTIL LEVEL {0.05 LMOL/L, 1 DAY, CYCLE LENGTH 21 DAYS
     Route: 042
  5. LEUCOVORIN [Suspect]
     Indication: BURKITT^S LEUKAEMIA
     Dosage: 50 MG/M2 36 HOURS AFTER INITIATION OF METHOTREXATE, 2 DAYS, CYCLE LENGTH 21 DAYS
     Route: 042
  6. LEUCOVORIN [Suspect]
     Indication: BURKITT^S LEUKAEMIA
     Dosage: EVERY 6 HOURS UNTIL LEVEL {0.05 LMOL/L, 1 DAY, CYCLE LENGTH 21 DAYS
     Route: 042
  7. LEUCOVORIN [Suspect]
     Indication: BURKITT^S LEUKAEMIA
     Dosage: 50 MG/M2 36 HOURS AFTER INITIATION OF METHOTREXATE, 2 DAYS, CYCLE LENGTH 21 DAYS
     Route: 042
  8. LEUCOVORIN [Suspect]
     Indication: BURKITT^S LEUKAEMIA
     Dosage: EVERY 6 HOURS UNTIL LEVEL {0.05 LMOL/L, 1 DAY, CYCLE LENGTH 21 DAYS
     Route: 042
  9. VINCRISTINE [Suspect]
     Indication: BURKITT^S LYMPHOMA
     Dosage: 1 DAY, CYCLE LENGTH 21 DAYS
     Route: 042
  10. VINCRISTINE [Suspect]
     Indication: BURKITT^S LYMPHOMA
     Dosage: 1 DAY, CYCLE LENGTH 21 DAYS
     Route: 042
  11. VINCRISTINE [Suspect]
     Indication: BURKITT^S LEUKAEMIA
     Dosage: 1 DAY, CYCLE LENGTH 21 DAYS
     Route: 042
  12. VINCRISTINE [Suspect]
     Indication: BURKITT^S LEUKAEMIA
     Dosage: 1 DAY, CYCLE LENGTH 21 DAYS
     Route: 042
  13. CYTARABINE [Suspect]
     Indication: BURKITT^S LYMPHOMA
     Dosage: 4-5 DAYS, OVER 2 HOURS, CYCLE LENGTH 21 DAYS
     Route: 065
  14. CYTARABINE [Suspect]
     Indication: BURKITT^S LEUKAEMIA
     Dosage: 4-5 DAYS, OVER 2 HOURS, CYCLE LENGTH 21 DAYS
     Route: 065
  15. ETOPOSIDE [Suspect]
     Indication: BURKITT^S LYMPHOMA
     Dosage: 4-5 DAYS, OVER 1 HOUR, CYCLE LENGTH 21 DAYS
     Route: 065
  16. ETOPOSIDE [Suspect]
     Indication: BURKITT^S LEUKAEMIA
     Dosage: 4-5 DAYS, OVER 1 HOUR, CYCLE LENGTH 21 DAYS
     Route: 065
  17. RITUXIMAB [Suspect]
     Indication: BURKITT^S LYMPHOMA
     Dosage: 50 MG/M2 ON DAY 8 AND 375 MG/M2/D ON DAYS 10 AND 12
     Route: 065
  18. RITUXIMAB [Suspect]
     Indication: BURKITT^S LYMPHOMA
     Dosage: CYCLES 3-7, DAY 8 OF EACH CYCLE
     Route: 065
  19. RITUXIMAB [Suspect]
     Indication: BURKITT^S LYMPHOMA
     Dosage: CYCLES 3-7, DAY 8 OF EACH CYCLE
     Route: 065
  20. RITUXIMAB [Suspect]
     Indication: BURKITT^S LYMPHOMA
     Dosage: 50 MG/M2 ON DAY 8 AND 375 MG/M2/D ON DAYS 10 AND 12
     Route: 065
  21. RITUXIMAB [Suspect]
     Indication: BURKITT^S LEUKAEMIA
     Dosage: CYCLES 3-7, DAY 8 OF EACH CYCLE
     Route: 065
  22. RITUXIMAB [Suspect]
     Indication: BURKITT^S LEUKAEMIA
     Dosage: 50 MG/M2 ON DAY 8 AND 375 MG/M2/D ON DAYS 10 AND 12
     Route: 065
  23. RITUXIMAB [Suspect]
     Indication: BURKITT^S LEUKAEMIA
     Dosage: CYCLES 3-7, DAY 8 OF EACH CYCLE
     Route: 065
  24. RITUXIMAB [Suspect]
     Indication: BURKITT^S LEUKAEMIA
     Dosage: 50 MG/M2 ON DAY 8 AND 375 MG/M2/D ON DAYS 10 AND 12
     Route: 065
  25. CYTARABINE [Suspect]
     Indication: BURKITT^S LYMPHOMA
     Route: 037
  26. CYTARABINE [Suspect]
     Indication: BURKITT^S LEUKAEMIA
     Route: 037
  27. HYDROCORTISONE [Suspect]
     Indication: BURKITT^S LYMPHOMA
     Route: 037
  28. HYDROCORTISONE [Suspect]
     Indication: BURKITT^S LEUKAEMIA
     Route: 037
  29. MESNA [Concomitant]
     Indication: BURKITT^S LYMPHOMA
     Dosage: 1-5 DAYS, CYCLE LENGTH 21 DAYS
     Route: 065
  30. MESNA [Concomitant]
     Indication: BURKITT^S LEUKAEMIA
     Dosage: 1-5 DAYS, CYCLE LENGTH 21 DAYS
     Route: 065
  31. FILGRASTIM [Concomitant]
     Indication: PROPHYLAXIS
     Dosage: SEVEN, UNTIL ANC } 0.5X10^ 9/L
     Route: 065
  32. FILGRASTIM [Concomitant]
     Indication: PROPHYLAXIS
     Dosage: SEVEN, UNTIL ANC } 0.5X10^ 9/L
     Route: 065
  33. FILGRASTIM [Concomitant]
     Indication: PROPHYLAXIS
     Dosage: SEVEN, UNTIL ANC } 0.5X10^ 9/L
     Route: 065
  34. FILGRASTIM [Concomitant]
     Indication: PROPHYLAXIS
     Dosage: SEVEN, UNTIL ANC } 0.5X10^ 9/L
     Route: 065
  35. DOXORUBICIN [Suspect]
     Indication: BURKITT^S LYMPHOMA
     Route: 042
  36. DOXORUBICIN [Suspect]
     Indication: BURKITT^S LYMPHOMA
     Route: 042
  37. DOXORUBICIN [Suspect]
     Indication: BURKITT^S LEUKAEMIA
     Route: 042
  38. DOXORUBICIN [Suspect]
     Indication: BURKITT^S LEUKAEMIA
     Route: 042
  39. CYCLOPHOSPHAMIDE [Suspect]
     Indication: BURKITT^S LYMPHOMA
     Dosage: 1-5 DAYS
     Route: 065
  40. CYCLOPHOSPHAMIDE [Suspect]
     Indication: BURKITT^S LYMPHOMA
     Dosage: 1-5 DAYS
     Route: 065
  41. CYCLOPHOSPHAMIDE [Suspect]
     Indication: BURKITT^S LEUKAEMIA
     Dosage: 1-5 DAYS
     Route: 065
  42. CYCLOPHOSPHAMIDE [Suspect]
     Indication: BURKITT^S LEUKAEMIA
     Dosage: 1-5 DAYS
     Route: 065
  43. PREDNISONE [Suspect]
     Indication: BURKITT^S LYMPHOMA
     Dosage: 1-7 DAYS
     Route: 048
  44. PREDNISONE [Suspect]
     Indication: BURKITT^S LEUKAEMIA
     Dosage: 1-7 DAYS
     Route: 048
  45. ALLOPURINOL [Suspect]
     Indication: BURKITT^S LYMPHOMA
     Dosage: 1-14 DAYS
     Route: 048
  46. ALLOPURINOL [Suspect]
     Indication: BURKITT^S LEUKAEMIA
     Dosage: 1-14 DAYS
     Route: 048
  47. IFOSFAMIDE [Suspect]
     Indication: BURKITT^S LYMPHOMA
     Dosage: 1-5 DAYS, CYCLE LENGTH 21 DAYS
     Route: 065
  48. IFOSFAMIDE [Suspect]
     Indication: BURKITT^S LEUKAEMIA
     Dosage: 1-5 DAYS, CYCLE LENGTH 21 DAYS
     Route: 065
  49. DEXAMETHASONE [Suspect]
     Indication: BURKITT^S LYMPHOMA
     Dosage: 1-5 DAYS, CYCLE LENGTH 21 DAYS
     Route: 065
  50. DEXAMETHASONE [Suspect]
     Indication: BURKITT^S LYMPHOMA
     Dosage: 1-5 DAYS, CYCLE LENGTH 21 DAYS
     Route: 065
  51. DEXAMETHASONE [Suspect]
     Indication: BURKITT^S LEUKAEMIA
     Dosage: 1-5 DAYS, CYCLE LENGTH 21 DAYS
     Route: 065
  52. DEXAMETHASONE [Suspect]
     Indication: BURKITT^S LEUKAEMIA
     Dosage: 1-5 DAYS, CYCLE LENGTH 21 DAYS
     Route: 065
  53. METHOTREXATE [Suspect]
     Indication: BURKITT^S LYMPHOMA
     Dosage: 1 DAY, CYCLE LENGTH 21 DAYS
     Route: 065
  54. METHOTREXATE [Suspect]
     Indication: BURKITT^S LYMPHOMA
     Dosage: 1 DAY, CYCLE LENGTH 21 DAYS
     Route: 065
  55. METHOTREXATE [Suspect]
     Indication: BURKITT^S LYMPHOMA
     Dosage: INTRATHECAL THERAPY
     Route: 065
  56. METHOTREXATE [Suspect]
     Indication: BURKITT^S LYMPHOMA
     Dosage: 35 G/M2 OVER 23.5 HOURS, 1 DAY, CYCLE LENGTH 21 DAYS
     Route: 065
  57. METHOTREXATE [Suspect]
     Indication: BURKITT^S LYMPHOMA
     Dosage: 35 G/M2 OVER 23.5 HOURS, 1 DAY, CYCLE LENGTH 21 DAYS
     Route: 065
  58. METHOTREXATE [Suspect]
     Indication: BURKITT^S LEUKAEMIA
     Dosage: 1 DAY, CYCLE LENGTH 21 DAYS
     Route: 065
  59. METHOTREXATE [Suspect]
     Indication: BURKITT^S LEUKAEMIA
     Dosage: 1 DAY, CYCLE LENGTH 21 DAYS
     Route: 065
  60. METHOTREXATE [Suspect]
     Indication: BURKITT^S LEUKAEMIA
     Dosage: 35 G/M2 OVER 23.5 HOURS, 1 DAY, CYCLE LENGTH 21 DAYS
     Route: 065
  61. METHOTREXATE [Suspect]
     Indication: BURKITT^S LEUKAEMIA
     Dosage: INTRATHECAL THERAPY
     Route: 065
  62. METHOTREXATE [Suspect]
     Indication: BURKITT^S LEUKAEMIA
     Dosage: 35 G/M2 OVER 23.5 HOURS, 1 DAY, CYCLE LENGTH 21 DAYS
     Route: 065

REACTIONS (2)
  - Toxicity to various agents [Unknown]
  - Chemotherapy [Fatal]
